FAERS Safety Report 19959966 (Version 2)
Quarter: 2021Q4

REPORT INFORMATION
  Report Type: Spontaneous
  Country: US (occurrence: US)
  Receive Date: 20211015
  Receipt Date: 20211104
  Transmission Date: 20220303
  Serious: Yes (Other)
  Sender: FDA-Public Use
  Company Number: US-JNJFOC-20211010033

PATIENT
  Sex: Female
  Weight: 62.198 kg

DRUGS (7)
  1. SPRAVATO [Suspect]
     Active Substance: ESKETAMINE
     Indication: Depression
     Dosage: 28 MG, 4 TOTAL DOSES
     Dates: start: 20210205, end: 20210216
  2. SPRAVATO [Suspect]
     Active Substance: ESKETAMINE
     Dosage: 56 MG, 4 TOTAL DOSES
     Dates: start: 20210219, end: 20210303
  3. SPRAVATO [Suspect]
     Active Substance: ESKETAMINE
     Dosage: 28 MG, 3 TOTAL DOSES
     Dates: start: 20210305, end: 20210312
  4. SPRAVATO [Suspect]
     Active Substance: ESKETAMINE
     Dosage: 56 MG, 5 TOTAL DOSES
     Dates: start: 20210326, end: 20210413
  5. SPRAVATO [Suspect]
     Active Substance: ESKETAMINE
     Dosage: 84MG, 16 TOTAL DOSES
     Dates: start: 20210504, end: 20210928
  6. DULOXETINE [Concomitant]
     Active Substance: DULOXETINE
     Indication: Product used for unknown indication
  7. CLONAZEPAM [Concomitant]
     Active Substance: CLONAZEPAM
     Indication: Product used for unknown indication

REACTIONS (9)
  - Altered state of consciousness [Unknown]
  - Suicidal ideation [Unknown]
  - Balance disorder [Unknown]
  - Feeling drunk [Unknown]
  - Migraine [Unknown]
  - Arthritis [Unknown]
  - Drug ineffective [Unknown]
  - Feeling abnormal [Unknown]
  - Depressed mood [Unknown]
